FAERS Safety Report 4744624-0 (Version None)
Quarter: 2005Q3

REPORT INFORMATION
  Report Type: 
  Country: None (occurrence: None)
  Receive Date: 20050810
  Receipt Date: 20050619
  Transmission Date: 20060218
  Serious: Yes (Life-Threatening, Hospitalization)
  Sender: FDA-Public Use
  Company Number: 2005-02228

PATIENT
  Age: 50 Year
  Sex: Male

DRUGS (1)
  1. TRELSTAR [Suspect]
     Indication: PROSTATE CANCER
     Dosage: 11.25 MG, SINGLE, INTRAMUSCULAR
     Route: 030
     Dates: start: 20050527, end: 20050527

REACTIONS (4)
  - ANAPHYLACTIC SHOCK [None]
  - LOSS OF CONSCIOUSNESS [None]
  - THROAT TIGHTNESS [None]
  - URTICARIA [None]
